FAERS Safety Report 5296575-3 (Version None)
Quarter: 2007Q2

REPORT INFORMATION
  Report Type: 
  Country: None (occurrence: None)
  Receive Date: 20070413
  Receipt Date: 20070410
  Transmission Date: 20071010
  Serious: Yes (Other)
  Sender: FDA-Public Use
  Company Number: JP-BOEHRINGER INGELHEIM PHARMACEUTICALS, INC.-2007-BP-03012NB

PATIENT
  Sex: Female
  Weight: 10 kg

DRUGS (4)
  1. PERSANTIN [Suspect]
     Indication: KAWASAKI'S DISEASE
     Route: 048
     Dates: start: 20061116, end: 20061130
  2. PERIACTIN [Suspect]
     Indication: KAWASAKI'S DISEASE
     Route: 048
     Dates: start: 20061116, end: 20061130
  3. ASPIRIN [Concomitant]
     Indication: KAWASAKI'S DISEASE
     Route: 048
     Dates: start: 20061028, end: 20061130
  4. PERIACTIN [Concomitant]
     Route: 048
     Dates: start: 20061116, end: 20061130

REACTIONS (1)
  - LIVER DISORDER [None]
